FAERS Safety Report 26058056 (Version 1)
Quarter: 2025Q4

REPORT INFORMATION
  Report Type: Spontaneous
  Country: US (occurrence: US)
  Receive Date: 20251118
  Receipt Date: 20251118
  Transmission Date: 20260117
  Serious: No
  Sender: SANDOZ
  Company Number: US-SANDOZ-SDZ2025US085003

PATIENT
  Sex: Female

DRUGS (1)
  1. OMEPRAZOLE [Suspect]
     Active Substance: OMEPRAZOLE
     Indication: Product used for unknown indication
     Dosage: UNK (STRENGTH 40 MG)
     Route: 065

REACTIONS (3)
  - Gastrointestinal disorder [Unknown]
  - Product dose omission in error [Unknown]
  - Product availability issue [Unknown]
